FAERS Safety Report 4684382-1 (Version None)
Quarter: 2005Q2

REPORT INFORMATION
  Report Type: 
  Country: None (occurrence: None)
  Receive Date: 20050531
  Receipt Date: 20040519
  Transmission Date: 20051028
  Serious: Yes (Death)
  Sender: FDA-Public Use
  Company Number: 200413921US

PATIENT
  Sex: Male

DRUGS (1)
  1. LOVENOX [Suspect]
     Dosage: 100 (TOTAL 3 DOSE RECEIVED) MG Q12H

REACTIONS (1)
  - HAEMORRHAGE INTRACRANIAL [None]
